FAERS Safety Report 9869903 (Version 4)
Quarter: 2014Q2

REPORT INFORMATION
  Report Type: Spontaneous
  Country: BR (occurrence: None)
  Receive Date: 20140203
  Receipt Date: 20140422
  Transmission Date: 20141212
  Serious: Yes (Hospitalization)
  Sender: FDA-Public Use
  Company Number: KAD201401-000119

PATIENT
  Age: 54 Year
  Sex: Female

DRUGS (15)
  1. RIBAVIRIN (RIBAVIRIN) [Suspect]
     Indication: HEPATITIS C
     Dosage: (2 PILLS IN AM AND 1 PILL IN PM), ORAL
     Route: 048
     Dates: start: 20131127, end: 20140108
  2. BMS 914143 (PEGINTERFERON LAMBDA) [Suspect]
     Indication: CHRONIC HEPATITIS C
     Dosage: ONCE A WEEK, SUBCUTANEOUS
     Route: 058
     Dates: start: 20131127, end: 20140101
  3. PEGINTERFERON ALFA-2A (PEGINTERFERON ALFA-2A) [Suspect]
     Indication: CHRONIC HEPATITIS C
     Dosage: 180 MCG/WEEK, SUBCUTANEOUS
     Route: 058
     Dates: start: 20131127, end: 20140101
  4. TELAPREVIR (TELAPREVIR) [Suspect]
     Indication: CHRONIC HEPATITIS C
     Dosage: (2 PILLS EVERY 8 HOURS), ORAL
     Route: 048
     Dates: start: 20131127, end: 20140108
  5. LOPERAMID (LOPERAMIDE HCL) [Concomitant]
  6. TELMISARTAN + HCTZ (TELMISARTAN, HYDROCHLORTHIAZIDE) [Concomitant]
  7. ONDANSETRON (ONDANSETRON HCL) [Concomitant]
  8. PANTOPRAZOLE (PANTOPRAZOLE SODIUM) [Concomitant]
  9. DEXAMETHASONE (DEXAMETHASONE) [Concomitant]
  10. HYDROXYZINE (HYDROXYZINE) [Concomitant]
  11. ESOMEPRAZOLE (OMEPRZOLE) [Concomitant]
  12. URSODEOXYCHOLIC ACID (URSODEOXYCHOLIC ACID) UNKNOWN) [Concomitant]
  13. CHOLESTYRAMINE (CHOLESTYRAMINE) [Concomitant]
  14. NORETHISTERONE (NORETHITERONE) [Concomitant]
  15. FOLIC ACID (FOLIC ACID) [Concomitant]

REACTIONS (6)
  - Drug-induced liver injury [None]
  - Jaundice [None]
  - Hypertransaminasaemia [None]
  - Aspartate aminotransferase increased [None]
  - Gamma-glutamyltransferase increased [None]
  - Alanine aminotransferase increased [None]
